FAERS Safety Report 24770548 (Version 2)
Quarter: 2025Q1

REPORT INFORMATION
  Report Type: Spontaneous
  Country: DE (occurrence: DE)
  Receive Date: 20241224
  Receipt Date: 20250220
  Transmission Date: 20250409
  Serious: Yes (Other)
  Sender: RANBAXY
  Company Number: DE-SUN PHARMACEUTICAL INDUSTRIES LTD-2024RR-485881

PATIENT
  Age: 71 Year
  Sex: Male

DRUGS (2)
  1. TILDRAKIZUMAB [Suspect]
     Active Substance: TILDRAKIZUMAB
     Indication: Product used for unknown indication
     Route: 065
     Dates: start: 202401, end: 20240408
  2. FUMARIC ACID [Concomitant]
     Active Substance: FUMARIC ACID
     Indication: Immunosuppressant drug therapy
     Route: 065
     Dates: start: 2005

REACTIONS (1)
  - Prostate cancer [Unknown]
